FAERS Safety Report 9758245 (Version 1)
Quarter: 2013Q4

REPORT INFORMATION
  Report Type: Spontaneous
  Country: US (occurrence: None)
  Receive Date: 20131213
  Receipt Date: 20131213
  Transmission Date: 20140711
  Serious: Yes (Congenital Anomaly)
  Sender: FDA-Public Use
  Company Number: None

PATIENT
  Age: 6 Month
  Sex: Female

DRUGS (1)
  1. SERTRALINE [Suspect]
     Indication: POSTPARTUM DEPRESSION
     Route: 048
     Dates: start: 20130423, end: 20130801

REACTIONS (2)
  - Maternal drugs affecting foetus [None]
  - Ventricular septal defect [None]
